FAERS Safety Report 23427924 (Version 4)
Quarter: 2024Q2

REPORT INFORMATION
  Report Type: Spontaneous
  Country: US (occurrence: US)
  Receive Date: 20240122
  Receipt Date: 20240408
  Transmission Date: 20240716
  Serious: No
  Sender: FDA-Public Use
  Company Number: US-PFIZER INC-PV202300067433

PATIENT
  Age: 74 Year
  Sex: Female

DRUGS (4)
  1. IBRANCE [Suspect]
     Active Substance: PALBOCICLIB
     Indication: Breast cancer metastatic
     Dosage: 125 MG, DAILY
     Route: 048
     Dates: start: 202304, end: 202308
  2. IBRANCE [Suspect]
     Active Substance: PALBOCICLIB
     Dosage: 3 DAYS A WEEK FOR A WHILE, MONDAY, WEDNESDAY, AND FRIDAY.
     Dates: start: 202310
  3. IBRANCE [Suspect]
     Active Substance: PALBOCICLIB
     Dosage: 5 DAYS AND 2 DAYS OFF
  4. LETROZOLE [Concomitant]
     Active Substance: LETROZOLE
     Indication: Breast cancer metastatic
     Dosage: 2.5 MG, DAILY
     Route: 048
     Dates: start: 202304

REACTIONS (4)
  - Eating disorder [Recovering/Resolving]
  - Sleep disorder [Recovering/Resolving]
  - Off label use [Unknown]
  - Product dispensing error [Unknown]

NARRATIVE: CASE EVENT DATE: 20230801
